FAERS Safety Report 23350192 (Version 1)
Quarter: 2023Q4

REPORT INFORMATION
  Report Type: Spontaneous
  Country: US (occurrence: US)
  Receive Date: 20231229
  Receipt Date: 20231229
  Transmission Date: 20240109
  Serious: Yes (Hospitalization)
  Sender: FDA-Public Use
  Company Number: US-SANDOZ-SDZ2023US071653

PATIENT
  Age: 58 Year
  Sex: Male

DRUGS (5)
  1. QUETIAPINE [Suspect]
     Active Substance: QUETIAPINE
     Indication: Depressed mood
     Dosage: 25 UNK, QD AT BED TIME INSTRUCTED TO TITRATE UP TO 50 MG/D.
     Route: 065
  2. QUETIAPINE [Suspect]
     Active Substance: QUETIAPINE
     Indication: Anxiety
  3. QUETIAPINE [Suspect]
     Active Substance: QUETIAPINE
     Indication: Insomnia
  4. QUETIAPINE [Suspect]
     Active Substance: QUETIAPINE
     Indication: Tachyphrenia
  5. QUETIAPINE [Suspect]
     Active Substance: QUETIAPINE
     Indication: Tearfulness

REACTIONS (2)
  - Mania [Recovering/Resolving]
  - Incorrect dose administered [Unknown]
